FAERS Safety Report 20098352 (Version 1)
Quarter: 2021Q4

REPORT INFORMATION
  Report Type: Other
  Country: CA (occurrence: CA)
  Receive Date: 20211122
  Receipt Date: 20211122
  Transmission Date: 20220303
  Serious: Yes (Other)
  Sender: FDA-Public Use
  Company Number: CA-PFIZER INC-202101565737

PATIENT
  Age: 40 Year
  Sex: Female

DRUGS (16)
  1. FLUCONAZOLE [Interacting]
     Active Substance: FLUCONAZOLE
     Indication: Oesophageal candidiasis
     Dosage: 100 MG, 1X/DAY
     Route: 065
  2. CLARITHROMYCIN [Interacting]
     Active Substance: CLARITHROMYCIN
     Indication: Helicobacter duodenal ulcer
     Dosage: 1000 MG, 1X/DAY
     Route: 065
  3. DILTIAZEM HYDROCHLORIDE [Interacting]
     Active Substance: DILTIAZEM HYDROCHLORIDE
     Indication: Hypertension
     Dosage: 120 MG, 1X/DAY
     Route: 065
  4. DILTIAZEM HYDROCHLORIDE [Interacting]
     Active Substance: DILTIAZEM HYDROCHLORIDE
     Dosage: 360 MG, 1X/DAY
     Route: 065
  5. PYRAZINAMIDE [Interacting]
     Active Substance: PYRAZINAMIDE
     Indication: Tuberculosis
     Dosage: 1000 MG
     Route: 065
  6. RIFAMPIN [Interacting]
     Active Substance: RIFAMPIN
     Indication: Tuberculosis
     Dosage: 600 MG, 1X/DAY
     Route: 065
  7. TACROLIMUS [Interacting]
     Active Substance: TACROLIMUS
     Indication: Renal transplant
     Dosage: 12 MG, 1X/DAY
     Route: 065
  8. TACROLIMUS [Interacting]
     Active Substance: TACROLIMUS
     Dosage: 6 MG, 1X/DAY
     Route: 065
  9. TACROLIMUS [Interacting]
     Active Substance: TACROLIMUS
     Dosage: 32 MG, 1X/DAY
     Route: 065
  10. TACROLIMUS [Interacting]
     Active Substance: TACROLIMUS
     Dosage: 8 MG, 1X/DAY
     Route: 065
  11. CEPHALEXIN [Concomitant]
     Active Substance: CEPHALEXIN
     Dosage: UNK
     Route: 065
  12. FERROUS GLUCONATE [Concomitant]
     Active Substance: FERROUS GLUCONATE
     Dosage: UNK
     Route: 065
  13. MYCOPHENOLATE MOFETIL [Concomitant]
     Active Substance: MYCOPHENOLATE MOFETIL
     Indication: Renal transplant
     Dosage: UNK
     Route: 065
  14. PREDNISONE [Concomitant]
     Active Substance: PREDNISONE
     Indication: Renal transplant
     Dosage: 70 MG
     Route: 065
  15. RANITIDINE [Concomitant]
     Active Substance: RANITIDINE
     Dosage: UNK
     Route: 065
  16. SULFAMETHOXAZOLE\TRIMETHOPRIM [Concomitant]
     Active Substance: SULFAMETHOXAZOLE\TRIMETHOPRIM
     Dosage: UNK
     Route: 065

REACTIONS (4)
  - Drug interaction [Recovered/Resolved]
  - Helicobacter duodenal ulcer [Recovered/Resolved]
  - Immunosuppressant drug level decreased [Recovered/Resolved]
  - Oesophageal candidiasis [Recovered/Resolved]
